FAERS Safety Report 6512334-5 (Version None)
Quarter: 2009Q4

REPORT INFORMATION
  Report Type: 
  Country: None (occurrence: None)
  Receive Date: 20091222
  Receipt Date: 20090702
  Transmission Date: 20100525
  Serious: No
  Sender: FDA-Public Use
  Company Number: US-ASTRAZENECA-2009UW18466

PATIENT
  Age: 60 Year
  Sex: Female
  Weight: 68.9 kg

DRUGS (2)
  1. CRESTOR [Suspect]
     Route: 048
     Dates: start: 20090701
  2. ADVAIR DISKUS 100/50 [Concomitant]
     Indication: ASTHMA

REACTIONS (4)
  - ABDOMINAL PAIN [None]
  - FEELING HOT [None]
  - MALAISE [None]
  - NAUSEA [None]
